FAERS Safety Report 15657068 (Version 1)
Quarter: 2018Q4

REPORT INFORMATION
  Report Type: Report from Study
  Country: ES (occurrence: ES)
  Receive Date: 20181126
  Receipt Date: 20181126
  Transmission Date: 20190205
  Serious: Yes (Death, Hospitalization, Other)
  Sender: FDA-Public Use
  Company Number: ES-SAKK-2018SA169479AA

PATIENT
  Age: 82 Year
  Sex: Female

DRUGS (5)
  1. PARACETAMOL + CAFFEINE [Concomitant]
     Active Substance: ACETAMINOPHEN\CAFFEINE
     Dosage: 1 G, Q8H
     Route: 042
     Dates: start: 20170714
  2. PANTOPRAZOL [PANTOPRAZOLE] [Concomitant]
     Dosage: 40 MG, QD
     Route: 042
     Dates: start: 20170714
  3. SALBUTAMOL [SALBUTAMOL SULFATE] [Concomitant]
     Dosage: 2 DF, TID
     Route: 055
     Dates: start: 20170714
  4. ENOXAPARIN SODIUM. [Suspect]
     Active Substance: ENOXAPARIN SODIUM
     Dosage: 40 MG, QD
     Route: 058
     Dates: start: 20170714, end: 20171005
  5. MIRTAZAPINA ACTAVIS [Concomitant]
     Active Substance: MIRTAZAPINE
     Dosage: 15 MG, QD
     Route: 048
     Dates: start: 20170714

REACTIONS (1)
  - Hypovolaemic shock [Fatal]

NARRATIVE: CASE EVENT DATE: 20171005
